FAERS Safety Report 9552924 (Version 1)
Quarter: 2013Q3

REPORT INFORMATION
  Report Type: Spontaneous
  Country: US (occurrence: None)
  Receive Date: 20130924
  Receipt Date: 20130924
  Transmission Date: 20140515
  Serious: No
  Sender: FDA-Public Use
  Company Number: None

PATIENT
  Age: 37 Year
  Sex: Male
  Weight: 86.18 kg

DRUGS (2)
  1. SUBUTEX [Suspect]
     Indication: DRUG DEPENDENCE
     Dosage: 1 TABLET
     Route: 048
     Dates: start: 20130524, end: 20130923
  2. KLONOPIN [Concomitant]

REACTIONS (1)
  - Abdominal discomfort [None]
